FAERS Safety Report 4499459-3 (Version None)
Quarter: 2004Q4

REPORT INFORMATION
  Report Type: 
  Country: None (occurrence: None)
  Receive Date: 20040928
  Receipt Date: 20040701
  Transmission Date: 20050328
  Serious: No
  Sender: FDA-Public Use
  Company Number: 04P-163-0265601-00

PATIENT
  Age: 42 Year
  Sex: Female
  Weight: 90.7194 kg

DRUGS (9)
  1. HUMIRA [Suspect]
     Indication: RHEUMATOID ARTHRITIS
     Dosage: 40 MG, 1 IN 2 WK, SUBCUTANEOUS
     Route: 058
     Dates: start: 20040105, end: 20040604
  2. HUMIRA [Suspect]
     Indication: RHEUMATOID ARTHRITIS
     Dosage: 40 MG, 1 IN 2 WK, SUBCUTANEOUS
     Route: 058
     Dates: start: 20040616
  3. CALIUM PLUS D [Concomitant]
  4. QUININE SULFATE [Concomitant]
  5. CARISOPRODOL [Concomitant]
  6. CETIRIZINE HCL [Concomitant]
  7. RABEPRAZOLE SODIUM [Concomitant]
  8. BUDESONIDE [Concomitant]
  9. METHOTREXATE [Concomitant]

REACTIONS (3)
  - INJECTION SITE BURNING [None]
  - INJECTION SITE HAEMORRHAGE [None]
  - UPPER RESPIRATORY TRACT INFECTION [None]
